FAERS Safety Report 17503990 (Version 1)
Quarter: 2020Q1

REPORT INFORMATION
  Report Type: Spontaneous
  Country: DE (occurrence: DE)
  Receive Date: 20200305
  Receipt Date: 20200305
  Transmission Date: 20200409
  Serious: Yes (Other)
  Sender: FDA-Public Use
  Company Number: DE-BAYER-2020-034346

PATIENT
  Age: 29 Year
  Sex: Female
  Weight: 70 kg

DRUGS (1)
  1. JAYDESS [Suspect]
     Active Substance: LEVONORGESTREL
     Indication: CONTRACEPTION
     Dosage: 14 MICROGRAM PER DAY CONTINUOUSLY
     Route: 015
     Dates: start: 20150504, end: 20190219

REACTIONS (24)
  - Thyroid cancer [Unknown]
  - Muscle twitching [Recovering/Resolving]
  - Ovarian cyst [Recovering/Resolving]
  - Palpitations [Recovering/Resolving]
  - Muscle tightness [Recovering/Resolving]
  - Feeling hot [Recovering/Resolving]
  - Heart rate increased [Recovering/Resolving]
  - Hepatic cyst [Recovering/Resolving]
  - Menstrual disorder [Recovering/Resolving]
  - Restlessness [Recovering/Resolving]
  - Dyspnoea [Recovering/Resolving]
  - Dry skin [Not Recovered/Not Resolved]
  - Nasopharyngitis [Recovering/Resolving]
  - Fatigue [Recovering/Resolving]
  - Pain [Recovering/Resolving]
  - Oedema mucosal [Recovering/Resolving]
  - Skin odour abnormal [Recovering/Resolving]
  - Mucosal dryness [Recovering/Resolving]
  - Sleep disorder [Recovering/Resolving]
  - Visual impairment [Recovering/Resolving]
  - Hair growth abnormal [Recovering/Resolving]
  - Dizziness [Recovering/Resolving]
  - Panic attack [Recovering/Resolving]
  - Tremor [Recovering/Resolving]

NARRATIVE: CASE EVENT DATE: 20180320
